FAERS Safety Report 10052232 (Version 3)
Quarter: 2014Q4

REPORT INFORMATION
  Report Type: Spontaneous
  Country: US (occurrence: US)
  Receive Date: 20140402
  Receipt Date: 20141222
  Transmission Date: 20150528
  Serious: Yes (Other)
  Sender: FDA-Public Use
  Company Number: US-BAYER-2014-049527

PATIENT
  Age: 28 Year
  Sex: Female
  Weight: 98.87 kg

DRUGS (4)
  1. GIANVI [Suspect]
     Active Substance: DROSPIRENONE\ETHINYL ESTRADIOL
     Indication: CONTRACEPTION
     Dosage: UNK
     Route: 048
     Dates: start: 20100523, end: 20101018
  2. YAZ [Suspect]
     Active Substance: DROSPIRENONE\ETHINYL ESTRADIOL
     Indication: CONTRACEPTION
     Dosage: UNK
     Route: 048
     Dates: start: 20100523, end: 20101018
  3. TRAMADOL [Concomitant]
     Active Substance: TRAMADOL
  4. LORTAB [Concomitant]
     Active Substance: ACETAMINOPHEN\HYDROCODONE BITARTRATE

REACTIONS (11)
  - Pain [Recovered/Resolved with Sequelae]
  - Poor peripheral circulation [None]
  - Emotional distress [None]
  - Pain [None]
  - Cerebrovascular accident [None]
  - Peripheral swelling [None]
  - Varicose vein [None]
  - Deep vein thrombosis [Recovered/Resolved with Sequelae]
  - Injury [Recovered/Resolved with Sequelae]
  - Thrombosis [None]
  - Pulmonary embolism [None]

NARRATIVE: CASE EVENT DATE: 20101018
